FAERS Safety Report 4951146-0 (Version None)
Quarter: 2006Q1

REPORT INFORMATION
  Report Type: 
  Country: None (occurrence: None)
  Receive Date: 20060322
  Receipt Date: 20051025
  Transmission Date: 20060701
  Serious: Yes (Hospitalization, Disabling, Other)
  Sender: FDA-Public Use
  Company Number: US-MERCK-0510USA09215

PATIENT
  Age: 69 Year
  Sex: Female
  Weight: 58 kg

DRUGS (4)
  1. VIOXX [Suspect]
     Indication: NECK PAIN
     Route: 048
     Dates: start: 19991209, end: 20040601
  2. VERAPAMIL [Suspect]
     Route: 065
  3. DARVOCET [Suspect]
     Route: 065
  4. MEDROL [Suspect]
     Route: 065

REACTIONS (39)
  - ABDOMINAL PAIN [None]
  - ACCIDENTAL OVERDOSE [None]
  - BLOOD CHOLESTEROL INCREASED [None]
  - BREAST TENDERNESS [None]
  - BRONCHITIS [None]
  - CARDIOVASCULAR DISORDER [None]
  - CEREBROVASCULAR ACCIDENT [None]
  - CERVICOBRACHIAL SYNDROME [None]
  - COUGH [None]
  - DIVERTICULUM [None]
  - DIZZINESS [None]
  - DYSPHAGIA [None]
  - DYSPNOEA [None]
  - ENDOMETRIAL DISORDER [None]
  - ENDOMETRIAL HYPERTROPHY [None]
  - FEELING ABNORMAL [None]
  - FUNDOSCOPY ABNORMAL [None]
  - HEADACHE [None]
  - HEMIPLEGIA [None]
  - HIATUS HERNIA [None]
  - HYPERSENSITIVITY [None]
  - LARYNGEAL OEDEMA [None]
  - MALNUTRITION [None]
  - MIGRAINE [None]
  - MUSCULOSKELETAL CHEST PAIN [None]
  - OESOPHAGEAL STENOSIS [None]
  - PARAESTHESIA [None]
  - PHARYNGOLARYNGEAL PAIN [None]
  - POSTMENOPAUSAL HAEMORRHAGE [None]
  - POSTNASAL DRIP [None]
  - PULMONARY EMBOLISM [None]
  - RECTAL HAEMORRHAGE [None]
  - SINUSITIS [None]
  - SKIN LESION [None]
  - SPINAL OSTEOARTHRITIS [None]
  - STRESS INCONTINENCE [None]
  - TRANSIENT ISCHAEMIC ATTACK [None]
  - URINARY TRACT INFECTION [None]
  - UTERINE DISORDER [None]
